APPROVED DRUG PRODUCT: SOVALDI
Active Ingredient: SOFOSBUVIR
Strength: 150MG/PACKET
Dosage Form/Route: PELLETS;ORAL
Application: N212480 | Product #001
Applicant: GILEAD SCIENCES INC
Approved: Aug 28, 2019 | RLD: Yes | RS: No | Type: RX

PATENTS:
Patent 8334270 | Expires: Mar 21, 2028
Patent 8580765 | Expires: Mar 21, 2028
Patent 7964580 | Expires: Mar 26, 2029
Patent 8618076 | Expires: Dec 11, 2030
Patent 9284342 | Expires: Sep 13, 2030
Patent 9085573 | Expires: Mar 21, 2028
Patent 8633309 | Expires: Mar 26, 2029
Patent 8889159 | Expires: Mar 26, 2029
Patent 8334270*PED | Expires: Sep 21, 2028
Patent 8580765*PED | Expires: Sep 21, 2028
Patent 7964580*PED | Expires: Sep 26, 2029
Patent 8618076*PED | Expires: Jun 11, 2031
Patent 9284342*PED | Expires: Mar 13, 2031
Patent 9085573*PED | Expires: Sep 21, 2028
Patent 8633309*PED | Expires: Sep 26, 2029
Patent 8889159*PED | Expires: Sep 26, 2029

EXCLUSIVITY:
Code: ODE-258 | Date: Aug 28, 2026